APPROVED DRUG PRODUCT: PALONOSETRON HYDROCHLORIDE
Active Ingredient: PALONOSETRON HYDROCHLORIDE
Strength: EQ 0.25MG BASE/5ML (EQ 0.05MG BASE/ML)
Dosage Form/Route: SOLUTION;INTRAVENOUS
Application: N208109 | Product #001
Applicant: FRESENIUS KABI USA LLC
Approved: Nov 21, 2017 | RLD: Yes | RS: No | Type: DISCN